FAERS Safety Report 21256730 (Version 1)
Quarter: 2022Q3

REPORT INFORMATION
  Report Type: Spontaneous
  Country: PT (occurrence: PT)
  Receive Date: 20220826
  Receipt Date: 20220826
  Transmission Date: 20221027
  Serious: Yes (Other)
  Sender: FDA-Public Use
  Company Number: PT-SUN PHARMACEUTICAL INDUSTRIES LTD-2022R1-352256

PATIENT
  Age: 27 Year
  Sex: Female

DRUGS (10)
  1. CISPLATIN [Suspect]
     Active Substance: CISPLATIN
     Indication: Aesthesioneuroblastoma
     Dosage: 75 MILLIGRAM/SQ. METER ON DAY 1 CYCLES EVERY 28 DAYS
     Route: 065
  2. ENOXAPARIN SODIUM [Suspect]
     Active Substance: ENOXAPARIN SODIUM
     Indication: Prophylaxis
     Dosage: UNK
     Route: 065
  3. FERROUS SULFATE [Suspect]
     Active Substance: FERROUS SULFATE
     Indication: Aesthesioneuroblastoma
     Dosage: UNK
     Route: 048
  4. FOLIC ACID [Suspect]
     Active Substance: FOLIC ACID
     Indication: Aesthesioneuroblastoma
     Dosage: UNK, DAILY
     Route: 065
  5. METOCLOPRAMIDE [Suspect]
     Active Substance: METOCLOPRAMIDE
     Indication: Aesthesioneuroblastoma
     Dosage: 10 MILLIGRAM
     Route: 065
  6. ONDANSETRON [Suspect]
     Active Substance: ONDANSETRON
     Indication: Aesthesioneuroblastoma
     Dosage: 8 MILLIGRAM
     Route: 065
  7. BETAMETHASONE [Suspect]
     Active Substance: BETAMETHASONE
     Indication: Maternal therapy to enhance foetal lung maturity
     Dosage: UNK
     Route: 065
  8. ETOPOSIDE [Suspect]
     Active Substance: ETOPOSIDE
     Indication: Aesthesioneuroblastoma
     Dosage: 75 MILLIGRAM/SQ. METER ON DAYS 1 TO 3 CYCLES EVERY 28 DAYS
     Route: 065
  9. IODINE [Suspect]
     Active Substance: IODINE
     Indication: Aesthesioneuroblastoma
     Dosage: UNK
     Route: 065
  10. HYDROCORTISONE [Suspect]
     Active Substance: HYDROCORTISONE
     Indication: Aesthesioneuroblastoma
     Dosage: 100 MILLIGRAM
     Route: 065

REACTIONS (9)
  - Exposure during pregnancy [Unknown]
  - Premature delivery [Unknown]
  - Therapy partial responder [Unknown]
  - Anaemia [Unknown]
  - Nausea [Unknown]
  - Vomiting [Unknown]
  - Visual acuity reduced [Unknown]
  - Dry mouth [Unknown]
  - Fibrosis [Unknown]
